FAERS Safety Report 24165876 (Version 2)
Quarter: 2024Q4

REPORT INFORMATION
  Report Type: Report from Study
  Country: BR (occurrence: BR)
  Receive Date: 20240802
  Receipt Date: 20241010
  Transmission Date: 20250115
  Serious: Yes (Life-Threatening, Hospitalization, Other)
  Sender: TAKEDA
  Company Number: BR-TAKEDA-2024TUS076356

PATIENT
  Age: 35 Year
  Sex: Female

DRUGS (4)
  1. ICATIBANT [Suspect]
     Active Substance: ICATIBANT ACETATE
     Indication: Hereditary angioedema
     Dosage: UNK
     Route: 058
  2. ICATIBANT [Suspect]
     Active Substance: ICATIBANT ACETATE
     Indication: Hereditary angioedema
     Dosage: UNK
     Route: 058
  3. BERINERT [Concomitant]
     Active Substance: HUMAN C1-ESTERASE INHIBITOR
     Dosage: UNK
     Route: 065
  4. TRANEXAMIC ACID [Concomitant]
     Active Substance: TRANEXAMIC ACID
     Dosage: UNK
     Route: 065

REACTIONS (13)
  - Sepsis [Unknown]
  - Anaphylactic reaction [Unknown]
  - Laryngeal stenosis [Unknown]
  - Pulmonary hypertension [Unknown]
  - Peripheral venous disease [Unknown]
  - Bacterial infection [Recovering/Resolving]
  - Emotional disorder [Unknown]
  - Product supply issue [Unknown]
  - Quality of life decreased [Unknown]
  - Death of relative [Unknown]
  - Cardiac disorder [Unknown]
  - Glucose tolerance impaired [Unknown]
  - Poor venous access [Unknown]

NARRATIVE: CASE EVENT DATE: 20240801
